FAERS Safety Report 9815887 (Version 2)
Quarter: 2014Q1

REPORT INFORMATION
  Report Type: Spontaneous
  Country: US (occurrence: US)
  Receive Date: 20140114
  Receipt Date: 20140219
  Transmission Date: 20141002
  Serious: Yes (Hospitalization)
  Sender: FDA-Public Use
  Company Number: US-B.I. PHARMACEUTICALS,INC./RIDGEFIELD-2014-BI-01393BP

PATIENT
  Age: 62 Year
  Sex: Female
  Weight: 95 kg

DRUGS (6)
  1. SPIRIVA [Suspect]
     Indication: CHRONIC OBSTRUCTIVE PULMONARY DISEASE
     Dosage: 18 MCG
     Route: 055
     Dates: start: 201206
  2. ASPIRIN [Concomitant]
     Indication: CARDIAC DISORDER
     Dosage: 81 MG
     Route: 048
  3. CLOPIDOGREL [Concomitant]
     Indication: BLOOD CHOLESTEROL INCREASED
     Route: 048
  4. GLIMEPIRIDE [Concomitant]
     Indication: DIABETES MELLITUS
     Route: 048
  5. PAXIL [Concomitant]
     Indication: CARDIAC DISORDER
     Route: 048
  6. METFORMIN [Concomitant]
     Indication: DIABETES MELLITUS
     Route: 048

REACTIONS (4)
  - Myocardial infarction [Recovered/Resolved]
  - Carotid artery occlusion [Recovered/Resolved]
  - Dyspnoea [Unknown]
  - Product quality issue [Unknown]
